FAERS Safety Report 9669544 (Version 3)
Quarter: 2014Q1

REPORT INFORMATION
  Report Type: Spontaneous
  Country: US (occurrence: US)
  Receive Date: 20131105
  Receipt Date: 20140115
  Transmission Date: 20141002
  Serious: No
  Sender: FDA-Public Use
  Company Number: US-PFIZER INC-2013313931

PATIENT
  Age: 57 Year
  Sex: Male
  Weight: 77.1 kg

DRUGS (2)
  1. LYRICA [Suspect]
     Indication: TRIGEMINAL NEURALGIA
     Dosage: 175 MG, 2X/DAY
     Dates: start: 201310, end: 201310
  2. CARBAMAZEPINE [Concomitant]
     Indication: MULTIPLE SCLEROSIS
     Dosage: 200 MG, 1X/DAY

REACTIONS (2)
  - Herpes zoster [Recovering/Resolving]
  - Pruritus [Recovering/Resolving]
